FAERS Safety Report 19197733 (Version 1)
Quarter: 2021Q2

REPORT INFORMATION
  Report Type: Spontaneous
  Country: SE (occurrence: SE)
  Receive Date: 20210430
  Receipt Date: 20210430
  Transmission Date: 20210717
  Serious: Yes (Death, Other)
  Sender: FDA-Public Use
  Company Number: SE-B.I. PHARMACEUTICALS,INC./RIDGEFIELD-2021-BI-100373

PATIENT
  Age: 78 Year
  Sex: Male

DRUGS (1)
  1. JARDIANCE [Suspect]
     Active Substance: EMPAGLIFLOZIN
     Indication: TYPE 2 DIABETES MELLITUS
     Dosage: 25 MG 1 TABLET DAILY
     Route: 048
     Dates: start: 20200930

REACTIONS (1)
  - Ketoacidosis [Fatal]

NARRATIVE: CASE EVENT DATE: 20201204
